FAERS Safety Report 6720087-0 (Version None)
Quarter: 2010Q2

REPORT INFORMATION
  Report Type: 
  Country: None (occurrence: None)
  Receive Date: 20100506
  Receipt Date: 20100421
  Transmission Date: 20101027
  Serious: Yes (Hospitalization, Other)
  Sender: FDA-Public Use
  Company Number: 2009003910

PATIENT
  Age: 56 Year
  Sex: Male

DRUGS (5)
  1. ERLOTINIB HYDROCHLORIDE [Suspect]
     Indication: COLORECTAL CANCER METASTATIC
     Dosage: (150 MG), ORAL
     Route: 048
  2. BEVACIZUMAB [Suspect]
     Indication: COLORECTAL CANCER METASTATIC
     Dosage: (362.5 MG), INTRAVENOUS
     Route: 042
     Dates: start: 20080429, end: 20080502
  3. FLUOROURACIL [Suspect]
     Indication: COLORECTAL CANCER METASTATIC
  4. OXALIPLATIN [Suspect]
     Indication: COLORECTAL CANCER METASTATIC
  5. DILAUDID [Concomitant]

REACTIONS (15)
  - AORTIC VALVE INCOMPETENCE [None]
  - ARTERIOSPASM CORONARY [None]
  - BLOOD ALBUMIN DECREASED [None]
  - BLOOD CREATININE INCREASED [None]
  - BLOOD GLUCOSE INCREASED [None]
  - ELECTROCARDIOGRAM ST SEGMENT DEPRESSION [None]
  - ELECTROCARDIOGRAM ST SEGMENT ELEVATION [None]
  - HAEMOGLOBIN DECREASED [None]
  - HEART SOUNDS ABNORMAL [None]
  - HIGH DENSITY LIPOPROTEIN INCREASED [None]
  - LEFT VENTRICULAR DYSFUNCTION [None]
  - MYOCARDIAL ISCHAEMIA [None]
  - NAUSEA [None]
  - PYREXIA [None]
  - TRICUSPID VALVE INCOMPETENCE [None]
